FAERS Safety Report 21037003 (Version 2)
Quarter: 2022Q3

REPORT INFORMATION
  Report Type: Report from Study
  Country: US (occurrence: None)
  Receive Date: 20220702
  Receipt Date: 20220815
  Transmission Date: 20221027
  Serious: Yes (Other)
  Sender: FDA-Public Use
  Company Number: 2022A237564

PATIENT

DRUGS (1)
  1. CALQUENCE [Interacting]
     Active Substance: ACALABRUTINIB
     Route: 048

REACTIONS (9)
  - Drug interaction [Unknown]
  - Thrombocytopenia [Unknown]
  - Tumour lysis syndrome [Unknown]
  - Toxicity to various agents [Unknown]
  - Drug ineffective [Unknown]
  - Neutropenia [Unknown]
  - Haemorrhage [Unknown]
  - Disease progression [Unknown]
  - Hypertension [Unknown]
